FAERS Safety Report 6017365-X (Version None)
Quarter: 2008Q4

REPORT INFORMATION
  Report Type: 
  Country: None (occurrence: None)
  Receive Date: 20081223
  Receipt Date: 20081216
  Transmission Date: 20090506
  Serious: Yes (Hospitalization)
  Sender: FDA-Public Use
  Company Number: FI-JNJFOC-20081100479

PATIENT
  Sex: Female

DRUGS (4)
  1. TOPIMAX [Suspect]
     Indication: MIGRAINE
     Route: 048
  2. AZAMUN [Concomitant]
     Indication: MUSCULOSKELETAL PAIN
     Route: 048
  3. THYROXIN [Concomitant]
     Indication: HYPOTHYROIDISM
     Route: 048
  4. ATACAND [Concomitant]
     Route: 048

REACTIONS (10)
  - ASTHENIA [None]
  - DEPRESSION [None]
  - DRY EYE [None]
  - EYE PAIN [None]
  - FATIGUE [None]
  - HYPOKINESIA [None]
  - LOSS OF CONSCIOUSNESS [None]
  - LOSS OF LIBIDO [None]
  - MEMORY IMPAIRMENT [None]
  - THOUGHT BLOCKING [None]
